FAERS Safety Report 6140661-2 (Version None)
Quarter: 2009Q1

REPORT INFORMATION
  Report Type: 
  Country: None (occurrence: None)
  Receive Date: 20090331
  Receipt Date: 20090320
  Transmission Date: 20090719
  Serious: Yes (Death, Other)
  Sender: FDA-Public Use
  Company Number: 2009-0498

PATIENT
  Age: 52 Year
  Sex: Female

DRUGS (3)
  1. MIRTAZAPINE [Suspect]
  2. METHAMPHETAMINE HYDROCHLORIDE [Suspect]
  3. DESIPRAMINE HCL [Suspect]

REACTIONS (3)
  - COMPLETED SUICIDE [None]
  - PULMONARY CONGESTION [None]
  - PULMONARY OEDEMA [None]
